FAERS Safety Report 4973897-4 (Version None)
Quarter: 2006Q2

REPORT INFORMATION
  Report Type: 
  Country: None (occurrence: None)
  Receive Date: 20060410
  Receipt Date: 20060327
  Transmission Date: 20061013
  Serious: Yes (Other)
  Sender: FDA-Public Use
  Company Number: C-06-0015

PATIENT
  Age: 75 Year
  Sex: Male
  Weight: 70.3075 kg

DRUGS (4)
  1. PROMETHAZINE W/DEXTROMETHORPHAN [Suspect]
     Indication: NASOPHARYNGITIS
     Dosage: 10 ML / 3 X DAY / ORAL
     Route: 048
     Dates: start: 20060105, end: 20060112
  2. PROMETHAZINE W/DEXTROMETHORPHAN [Suspect]
     Indication: NASOPHARYNGITIS
     Dosage: 10 ML / 3 X DAY / ORAL
     Route: 048
     Dates: start: 20060217, end: 20060224
  3. DOXYCYCLINE [Concomitant]
  4. CREST PRO HEALTH RINSE (CETYLPRIDINIUM CHLORIDE) [Concomitant]

REACTIONS (3)
  - NASOPHARYNGITIS [None]
  - TONGUE DISCOLOURATION [None]
  - TOOTH DISCOLOURATION [None]
